FAERS Safety Report 10191033 (Version 2)
Quarter: 2014Q2

REPORT INFORMATION
  Report Type: Spontaneous
  Country: US (occurrence: US)
  Receive Date: 20140523
  Receipt Date: 20140523
  Transmission Date: 20141212
  Serious: No
  Sender: FDA-Public Use
  Company Number: US-PFIZER INC-2013030633

PATIENT
  Sex: Female

DRUGS (6)
  1. DOXYCYCLINE HYCLATE [Suspect]
     Dosage: UNK
  2. METRONIDAZOLE [Suspect]
     Dosage: UNK
  3. FLEXERIL [Suspect]
     Dosage: UNK
  4. VIOXX [Suspect]
     Dosage: UNK
  5. BIAXIN [Suspect]
     Dosage: UNK
  6. HYDROCHLOROTHIAZIDE WITH TRIAMTERENE [Suspect]
     Dosage: UNK

REACTIONS (1)
  - Drug hypersensitivity [Unknown]
